FAERS Safety Report 20135453 (Version 1)
Quarter: 2021Q4

REPORT INFORMATION
  Report Type: Spontaneous
  Country: US (occurrence: None)
  Receive Date: 20211201
  Receipt Date: 20211201
  Transmission Date: 20220303
  Serious: Yes (Other)
  Sender: FDA-Public Use
  Company Number: US-ROCHE-2963581

PATIENT

DRUGS (2)
  1. TNKASE [Suspect]
     Active Substance: TENECTEPLASE
     Indication: Product used for unknown indication
     Route: 065
  2. TNKASE [Suspect]
     Active Substance: TENECTEPLASE

REACTIONS (2)
  - Off label use [Unknown]
  - Cerebrovascular accident [Unknown]
